FAERS Safety Report 5097578-4 (Version None)
Quarter: 2006Q3

REPORT INFORMATION
  Report Type: 
  Country: None (occurrence: None)
  Receive Date: 20060901
  Receipt Date: 20060822
  Transmission Date: 20061208
  Serious: Yes (Hospitalization)
  Sender: FDA-Public Use
  Company Number: 20063170

PATIENT
  Age: 61 Year
  Sex: Male

DRUGS (1)
  1. LIORESAL [Suspect]
     Indication: MUSCLE SPASTICITY
     Dosage: MCG, DAILY, INTRATHECAL
     Route: 037

REACTIONS (9)
  - ABNORMAL BEHAVIOUR [None]
  - CSF BACTERIA IDENTIFIED [None]
  - DEPRESSED LEVEL OF CONSCIOUSNESS [None]
  - DISORIENTATION [None]
  - DYSARTHRIA [None]
  - ESCHERICHIA INFECTION [None]
  - MENINGITIS BACTERIAL [None]
  - PAIN [None]
  - PARESIS [None]
